FAERS Safety Report 25800767 (Version 2)
Quarter: 2025Q3

REPORT INFORMATION
  Report Type: Report from Study
  Country: US (occurrence: US)
  Receive Date: 20250915
  Receipt Date: 20250925
  Transmission Date: 20251021
  Serious: No
  Sender: DECIPHERA PHARMACEUTICALS
  Company Number: US-DECIPHERA PHARMACEUTICALS LLC-2025US001077

PATIENT
  Age: 69 Year
  Sex: Male

DRUGS (2)
  1. QINLOCK [Suspect]
     Active Substance: RIPRETINIB
     Indication: Testis cancer
     Dosage: 150 MILLIGRAM, QD
     Dates: start: 20250813, end: 202508
  2. QINLOCK [Suspect]
     Active Substance: RIPRETINIB
     Dosage: 100 MILLIGRAM, QD (2 TABLETS DAILY)
     Dates: start: 20250825

REACTIONS (7)
  - Blood glucose increased [Unknown]
  - Migraine [Unknown]
  - Influenza like illness [Unknown]
  - Adverse drug reaction [Unknown]
  - Dyspnoea [Unknown]
  - Muscle spasms [Unknown]
  - Product use in unapproved indication [Unknown]

NARRATIVE: CASE EVENT DATE: 20250101
